FAERS Safety Report 8082337-0 (Version None)
Quarter: 2012Q1

REPORT INFORMATION
  Report Type: 
  Country: None (occurrence: None)
  Receive Date: 20120127
  Receipt Date: 20110214
  Transmission Date: 20120608
  Serious: No
  Sender: FDA-Public Use
  Company Number: US-ABBOTT-11P-163-0705873-00

PATIENT
  Sex: Female
  Weight: 113.5 kg

DRUGS (4)
  1. ENALAPRIL [Concomitant]
     Indication: HYPERTENSION
  2. HUMIRA [Suspect]
     Indication: PSORIASIS
     Dates: start: 20090801
  3. HUMIRA [Suspect]
     Indication: RHEUMATOID ARTHRITIS
  4. VITAMIN D [Concomitant]
     Indication: VITAMIN SUPPLEMENTATION

REACTIONS (5)
  - VITAMIN D DEFICIENCY [None]
  - FATIGUE [None]
  - WEIGHT INCREASED [None]
  - PSORIASIS [None]
  - VITAMIN B12 DEFICIENCY [None]
